FAERS Safety Report 9798697 (Version 2)
Quarter: 2015Q3

REPORT INFORMATION
  Report Type: Spontaneous
  Country: US (occurrence: US)
  Receive Date: 20140106
  Receipt Date: 20150806
  Transmission Date: 20151125
  Serious: No
  Sender: FDA-Public Use
  Company Number: US-GILEAD-2010-0029793

PATIENT
  Age: 65 Year
  Sex: Female
  Weight: 76.66 kg

DRUGS (11)
  1. LIPITOR [Concomitant]
     Active Substance: ATORVASTATIN CALCIUM
  2. SYMBICORT [Concomitant]
     Active Substance: BUDESONIDE\FORMOTEROL FUMARATE DIHYDRATE
  3. VITAMIN D [Concomitant]
     Active Substance: CHOLECALCIFEROL
  4. RELAFEN [Concomitant]
     Active Substance: NABUMETONE
  5. LASIX [Concomitant]
     Active Substance: FUROSEMIDE
  6. LETAIRIS [Suspect]
     Active Substance: AMBRISENTAN
     Indication: PULMONARY ARTERIAL HYPERTENSION
     Route: 048
     Dates: start: 20090911
  7. ATENOLOL. [Concomitant]
     Active Substance: ATENOLOL
  8. POTASSIUM CHLORIDE. [Concomitant]
     Active Substance: POTASSIUM CHLORIDE
  9. ASPIRIN. [Concomitant]
     Active Substance: ASPIRIN
  10. NITROGLYCERIN. [Concomitant]
     Active Substance: NITROGLYCERIN
  11. SYNTHROID [Concomitant]
     Active Substance: LEVOTHYROXINE SODIUM

REACTIONS (1)
  - Tendonitis [Unknown]
